FAERS Safety Report 13521726 (Version 1)
Quarter: 2017Q2

REPORT INFORMATION
  Report Type: Spontaneous
  Country: US (occurrence: US)
  Receive Date: 20170507
  Receipt Date: 20170507
  Transmission Date: 20170830
  Serious: Yes (Other)
  Sender: FDA-Public Use
  Company Number: None

PATIENT
  Age: 35 Year
  Sex: Female
  Weight: 57.15 kg

DRUGS (4)
  1. ADDERALL [Concomitant]
     Active Substance: AMPHETAMINE ASPARTATE\AMPHETAMINE SULFATE\DEXTROAMPHETAMINE SACCHARATE\DEXTROAMPHETAMINE SULFATE
  2. FLUOXETINE [Concomitant]
     Active Substance: FLUOXETINE HYDROCHLORIDE
  3. OCT B-12 [Concomitant]
  4. DEXTROAMPHET SACCHARAT, AMPHET ASPARTATE, DEXTROAMPHET SULFATE AND AMPHET SULFAT [Suspect]
     Active Substance: AMPHETAMINE ASPARTATE\AMPHETAMINE SULFATE\DEXTROAMPHETAMINE SACCHARATE\DEXTROAMPHETAMINE SULFATE
     Indication: ATTENTION DEFICIT/HYPERACTIVITY DISORDER
     Dosage: ?          QUANTITY:90 TABLET(S);?3 TIMES A DAY ORAL
     Route: 048
     Dates: start: 20170425, end: 20170507

REACTIONS (9)
  - Hypoaesthesia oral [None]
  - Hypoaesthesia [None]
  - Attention deficit/hyperactivity disorder [None]
  - Mood swings [None]
  - Dizziness [None]
  - Fatigue [None]
  - Product substitution issue [None]
  - Condition aggravated [None]
  - Headache [None]

NARRATIVE: CASE EVENT DATE: 20170425
